FAERS Safety Report 6370677-2 (Version None)
Quarter: 2009Q3

REPORT INFORMATION
  Report Type: 
  Country: None (occurrence: None)
  Receive Date: 20090923
  Receipt Date: 20071015
  Transmission Date: 20100115
  Serious: Yes (Other)
  Sender: FDA-Public Use
  Company Number: US-ASTRAZENECA-2006UW25203

PATIENT
  Age: 12195 Day
  Sex: Female

DRUGS (51)
  1. SEROQUEL [Suspect]
     Indication: BIPOLAR DISORDER
     Route: 048
     Dates: start: 20050401, end: 20050901
  2. SEROQUEL [Suspect]
     Indication: DEPRESSION
     Route: 048
     Dates: start: 20050401, end: 20050901
  3. SEROQUEL [Suspect]
     Indication: ATTENTION DEFICIT/HYPERACTIVITY DISORDER
     Route: 048
     Dates: start: 20050401, end: 20050901
  4. SEROQUEL [Suspect]
     Route: 048
     Dates: start: 20060110
  5. SEROQUEL [Suspect]
     Route: 048
     Dates: start: 20060110
  6. SEROQUEL [Suspect]
     Route: 048
     Dates: start: 20060110
  7. TENORMIN [Concomitant]
     Route: 048
  8. HYDROCORTISONE [Concomitant]
     Route: 048
  9. ALBUTEROL [Concomitant]
     Dosage: TWO PUFF TWO TIMES PER DAY
     Route: 045
  10. DIPHENHYDRAM [Concomitant]
     Route: 048
  11. ATIVAN [Concomitant]
     Route: 048
  12. PREDNISOLONE [Concomitant]
     Route: 048
  13. DETROL LA [Concomitant]
     Route: 048
  14. LEXAPRO [Concomitant]
     Dosage: 15 TO 20 MG DAILY
     Route: 048
  15. HYOSCYAMINE [Concomitant]
     Route: 048
  16. NEXIUM [Concomitant]
     Route: 048
  17. AMITRIPTYLINE [Concomitant]
     Route: 048
  18. ELMIRON [Concomitant]
     Route: 048
  19. ZELNORM [Concomitant]
     Route: 048
  20. RANITIDINE [Concomitant]
     Dosage: 150 TO 300 MG DAILY
     Route: 048
  21. DESOXIMETAS [Concomitant]
     Route: 065
  22. PRILOSEC [Concomitant]
     Route: 048
  23. RESTORIL [Concomitant]
     Route: 048
  24. METFORMIN HCL [Concomitant]
     Route: 048
  25. COREG [Concomitant]
     Route: 048
  26. PHENAZOPYRIDE [Concomitant]
     Route: 048
  27. ALPRAZOLAM [Concomitant]
     Route: 048
  28. LANOXIN [Concomitant]
     Route: 048
  29. MACROBID [Concomitant]
     Route: 048
  30. FUROSEMIDE [Concomitant]
     Route: 048
  31. PREVACID [Concomitant]
     Route: 048
  32. SUCRALFATE [Concomitant]
     Route: 065
  33. CEPHALEXIN [Concomitant]
     Route: 048
  34. RHINOCORT [Concomitant]
     Route: 045
  35. CLARITIN [Concomitant]
     Route: 048
  36. URIMAX [Concomitant]
     Route: 048
  37. ZOLOFT [Concomitant]
     Route: 048
  38. PAXIL [Concomitant]
     Dosage: 10 TO 30 MG
     Route: 048
  39. ALLEGRA D 24 HOUR [Concomitant]
     Route: 048
  40. TRAMADOL HYDROCHLORIDE [Concomitant]
     Route: 048
  41. GUAIFENEX [Concomitant]
     Route: 065
  42. NASONEX [Concomitant]
     Route: 065
  43. SINGULAIR [Concomitant]
     Route: 048
  44. IBUPROFEN [Concomitant]
     Route: 048
  45. STRATTERA [Concomitant]
     Route: 048
  46. CHOLESTYRAM [Concomitant]
     Route: 048
  47. AMBIEN [Concomitant]
     Route: 048
  48. AVANDARYL [Concomitant]
     Route: 065
  49. REMERON [Concomitant]
     Route: 048
  50. WELLBUTRIN SR [Concomitant]
     Route: 048
  51. TRAZODONE HCL [Concomitant]
     Route: 048

REACTIONS (13)
  - ANXIETY [None]
  - BORDERLINE PERSONALITY DISORDER [None]
  - DIABETES MELLITUS [None]
  - DIZZINESS [None]
  - HEADACHE [None]
  - HOT FLUSH [None]
  - INSOMNIA [None]
  - IRRITABILITY [None]
  - MAJOR DEPRESSION [None]
  - PATIENT ISOLATION [None]
  - SOCIAL PHOBIA [None]
  - SUICIDAL IDEATION [None]
  - WEIGHT INCREASED [None]
